FAERS Safety Report 18879848 (Version 1)
Quarter: 2021Q1

REPORT INFORMATION
  Report Type: Spontaneous
  Country: FR (occurrence: FR)
  Receive Date: 20210211
  Receipt Date: 20210211
  Transmission Date: 20210420
  Serious: Yes (Death, Hospitalization)
  Sender: FDA-Public Use
  Company Number: FR-TEVA-2021-FR-1878058

PATIENT
  Age: 77 Year
  Sex: Female

DRUGS (11)
  1. HYDROCHLOROTHIAZIDE. [Concomitant]
     Active Substance: HYDROCHLOROTHIAZIDE
  2. ACIDE CLAVULANIQUE [Suspect]
     Active Substance: CLAVULANIC ACID
     Indication: INFECTION
     Dosage: 375 MG
     Route: 048
     Dates: start: 20201209, end: 20201216
  3. ATENOLOL. [Concomitant]
     Active Substance: ATENOLOL
  4. LANSOPRAZOLE. [Concomitant]
     Active Substance: LANSOPRAZOLE
  5. PERINDOPRIL [Concomitant]
     Active Substance: PERINDOPRIL
  6. XARELTO [Concomitant]
     Active Substance: RIVAROXABAN
  7. ATORVASTATINE [Concomitant]
     Active Substance: ATORVASTATIN
  8. AMOXICILLINE [Suspect]
     Active Substance: AMOXICILLIN
     Indication: INFECTION
     Dosage: 3 GRAM
     Route: 048
     Dates: start: 20201209, end: 20201216
  9. FUROSEMIDE. [Concomitant]
     Active Substance: FUROSEMIDE
  10. AMLODIPINE [Concomitant]
     Active Substance: AMLODIPINE BESYLATE
  11. AMIODARONE [Concomitant]
     Active Substance: AMIODARONE

REACTIONS (4)
  - Jaundice cholestatic [Fatal]
  - Cholestasis [Fatal]
  - Cell death [Fatal]
  - Hepatitis [Fatal]

NARRATIVE: CASE EVENT DATE: 20201221
